FAERS Safety Report 5417859-1 (Version None)
Quarter: 2007Q3

REPORT INFORMATION
  Report Type: 
  Country: None (occurrence: None)
  Receive Date: 20070817
  Receipt Date: 20070809
  Transmission Date: 20080115
  Serious: Yes (Other)
  Sender: FDA-Public Use
  Company Number: HQWYE906005JUL07

PATIENT
  Sex: Female
  Weight: 64.47 kg

DRUGS (3)
  1. NORPLANT SYSTEM [Suspect]
     Indication: CONTRACEPTION
     Dosage: SIX CAPSULES
     Route: 058
     Dates: start: 19921207, end: 19940107
  2. LEVOTHYROXINE SODIUM [Concomitant]
     Indication: HYPOTHYROIDISM
     Dosage: 125 MCG DAILY
     Route: 048
  3. RISPERDAL [Concomitant]
     Dosage: UNKNOWN
     Route: 065

REACTIONS (3)
  - APPLICATION SITE ANAESTHESIA [None]
  - HEADACHE [None]
  - NERVOUS SYSTEM DISORDER [None]
